FAERS Safety Report 23433755 (Version 1)
Quarter: 2024Q1

REPORT INFORMATION
  Report Type: Spontaneous
  Country: CN (occurrence: CN)
  Receive Date: 20240123
  Receipt Date: 20240123
  Transmission Date: 20240409
  Serious: Yes (Other)
  Sender: FDA-Public Use
  Company Number: CN-AMGEN-CHNSP2024011754

PATIENT

DRUGS (1)
  1. PROLIA [Suspect]
     Active Substance: DENOSUMAB
     Indication: Osteogenesis imperfecta
     Dosage: 60 MILLIGRAM, Q6MO
     Route: 058

REACTIONS (7)
  - Femur fracture [Unknown]
  - Ulna fracture [Unknown]
  - Blood parathyroid hormone decreased [Unknown]
  - Injection site reaction [Unknown]
  - C-telopeptide decreased [Unknown]
  - Fatigue [Unknown]
  - Bone pain [Unknown]
